FAERS Safety Report 25196160 (Version 1)
Quarter: 2025Q2

REPORT INFORMATION
  Report Type: Spontaneous
  Country: CN (occurrence: CN)
  Receive Date: 20250415
  Receipt Date: 20250415
  Transmission Date: 20250716
  Serious: Yes (Disabling)
  Sender: SHANGHAI HENGRUI PHARMACEUTICAL
  Company Number: CN-Shanghai Hengrui Pharmaceutical Co., Ltd.-2174907

PATIENT
  Age: 11 Year
  Sex: Male
  Weight: 53.5 kg

DRUGS (9)
  1. SEVOFLURANE [Suspect]
     Active Substance: SEVOFLURANE
     Indication: Maintenance of anaesthesia
     Dates: start: 20250320, end: 20250320
  2. SEVOFLURANE [Suspect]
     Active Substance: SEVOFLURANE
     Indication: Sedation
  3. PROPOFOL [Suspect]
     Active Substance: PROPOFOL
     Dates: start: 20250320, end: 20250320
  4. ROPIVACAINE HYDROCHLORIDE [Concomitant]
     Active Substance: ROPIVACAINE HYDROCHLORIDE
     Dates: start: 20250320, end: 20250320
  5. PENEHYCLIDINE HYDROCHLORIDE [Concomitant]
     Active Substance: PENEHYCLIDINE HYDROCHLORIDE
     Dates: start: 20250320, end: 20250320
  6. MEZLOCILLIN SODIUM\SULBACTAM SODIUM [Concomitant]
     Active Substance: MEZLOCILLIN SODIUM\SULBACTAM SODIUM
     Dates: start: 20250320, end: 20250320
  7. SODIUM CHLORIDE [Concomitant]
     Active Substance: SODIUM CHLORIDE
     Dates: start: 20250320, end: 20250320
  8. SUFENTANIL CITRATE [Concomitant]
     Active Substance: SUFENTANIL CITRATE
     Dates: start: 20250320, end: 20250320
  9. ROCURONIUM [Suspect]
     Active Substance: ROCURONIUM BROMIDE
     Dates: start: 20250320, end: 20250320

REACTIONS (6)
  - Metabolic acidosis [Recovered/Resolved]
  - Respiratory failure [Recovered/Resolved]
  - Acute pulmonary oedema [Recovered/Resolved]
  - Shock [Recovered/Resolved]
  - Hypotension [Recovered/Resolved]
  - Hypoglycaemia [Recovered/Resolved]

NARRATIVE: CASE EVENT DATE: 20250320
